FAERS Safety Report 10135320 (Version 1)
Quarter: 2014Q2

REPORT INFORMATION
  Report Type: Spontaneous
  Country: US (occurrence: US)
  Receive Date: 20140428
  Receipt Date: 20140428
  Transmission Date: 20141212
  Serious: Yes (Other)
  Sender: FDA-Public Use
  Company Number: US-PFIZER INC-2014115250

PATIENT
  Sex: Male

DRUGS (3)
  1. GABAPENTIN [Suspect]
     Indication: PAIN
     Dosage: 100 MG, DAILY
     Dates: start: 20140320
  2. GABAPENTIN [Suspect]
     Indication: NEUROPATHY PERIPHERAL
     Dosage: 200 MG (100MG X 2 CAPSULES), DAILY
  3. GABAPENTIN [Suspect]
     Dosage: 300 MG (100MG X 3 CAPSULES), DAILY AT BEDTIME

REACTIONS (1)
  - Musculoskeletal pain [Recovered/Resolved]
